FAERS Safety Report 22340788 (Version 1)
Quarter: 2023Q2

REPORT INFORMATION
  Report Type: Report from Study
  Country: CA (occurrence: None)
  Receive Date: 20230518
  Receipt Date: 20230518
  Transmission Date: 20230722
  Serious: Yes (Hospitalization, Other)
  Sender: FDA-Public Use
  Company Number: 2023A111475

PATIENT
  Sex: Female

DRUGS (7)
  1. FASENRA [Suspect]
     Active Substance: BENRALIZUMAB
     Indication: Asthma
     Dosage: 30.0MG UNKNOWN
     Route: 058
     Dates: start: 20180912
  2. ALVESCO [Concomitant]
     Active Substance: CICLESONIDE
  3. ZENHALE [Concomitant]
     Active Substance: FORMOTEROL FUMARATE\MOMETASONE FUROATE
  4. VENTOLIN [Concomitant]
     Active Substance: ALBUTEROL SULFATE
  5. VITAMIN D [Concomitant]
     Active Substance: VITAMIN D NOS
  6. AZITHROMYCIN [Concomitant]
     Active Substance: AZITHROMYCIN
  7. SPIRIVA [Concomitant]
     Active Substance: TIOTROPIUM BROMIDE MONOHYDRATE

REACTIONS (7)
  - Sinusitis [Unknown]
  - Asthma [Unknown]
  - Nasal polyps [Unknown]
  - Drug ineffective [Unknown]
  - Therapeutic response unexpected [Unknown]
  - Inappropriate schedule of product administration [Unknown]
  - Insurance issue [Unknown]
